FAERS Safety Report 7432537-5 (Version None)
Quarter: 2011Q2

REPORT INFORMATION
  Report Type: 
  Country: None (occurrence: None)
  Receive Date: 20110422
  Receipt Date: 20110415
  Transmission Date: 20111010
  Serious: Yes (Hospitalization)
  Sender: FDA-Public Use
  Company Number: AU-PFIZER INC-2011080727

PATIENT
  Age: 43 Year
  Sex: Female

DRUGS (3)
  1. MAXOLON [Concomitant]
     Indication: NAUSEA
  2. DEXAMETHASONE [Concomitant]
     Indication: METASTASES TO CENTRAL NERVOUS SYSTEM
     Dosage: 1 MG, UNK
  3. SUTENT [Suspect]
     Indication: RENAL CELL CARCINOMA
     Dosage: 50 MG, 1X/DAY
     Route: 048
     Dates: start: 20101215, end: 20110415

REACTIONS (3)
  - HAEMOGLOBIN DECREASED [None]
  - MENORRHAGIA [None]
  - MENSTRUAL DISORDER [None]
